FAERS Safety Report 23702004 (Version 1)
Quarter: 2024Q2

REPORT INFORMATION
  Report Type: Spontaneous
  Country: US (occurrence: None)
  Receive Date: 20240402
  Receipt Date: 20240402
  Transmission Date: 20240716
  Serious: No
  Sender: FDA-Public Use
  Company Number: None

PATIENT
  Age: 84 Year
  Sex: Male

DRUGS (1)
  1. OTEZLA [Suspect]
     Active Substance: APREMILAST
     Indication: Psoriasis
     Dosage: OTHER QUANTITY : OTEZLA TAB 30MG;?FREQUENCY : TWICE A DAY;?

REACTIONS (2)
  - Pneumonia [None]
  - End stage renal disease [None]
